FAERS Safety Report 17423051 (Version 1)
Quarter: 2020Q1

REPORT INFORMATION
  Report Type: Spontaneous
  Country: US (occurrence: US)
  Receive Date: 20200130
  Receipt Date: 20200130
  Transmission Date: 20200409
  Serious: Yes (Hospitalization)
  Sender: FDA-Public Use
  Company Number: None

PATIENT
  Age: 61 Year
  Sex: Male
  Weight: 95.8 kg

DRUGS (3)
  1. CYCLOPHOSPHAMIDE. [Suspect]
     Active Substance: CYCLOPHOSPHAMIDE
     Dates: end: 20191104
  2. CYTARABINE. [Suspect]
     Active Substance: CYTARABINE
     Dates: end: 20191104
  3. MERCAPTOPURINE. [Suspect]
     Active Substance: MERCAPTOPURINE
     Dates: end: 20191104

REACTIONS (8)
  - Febrile neutropenia [None]
  - Rash [None]
  - Pancytopenia [None]
  - Chills [None]
  - Stomatitis [None]
  - Pyrexia [None]
  - Enterococcus test positive [None]
  - CSF culture positive [None]

NARRATIVE: CASE EVENT DATE: 20191116
